FAERS Safety Report 22235573 (Version 28)
Quarter: 2024Q4

REPORT INFORMATION
  Report Type: Report from Study
  Country: CO (occurrence: CO)
  Receive Date: 20230420
  Receipt Date: 20241123
  Transmission Date: 20250115
  Serious: Yes (Hospitalization, Other)
  Sender: TAKEDA
  Company Number: CO-TAKEDA-2021TUS043064

PATIENT
  Age: 19 Year
  Sex: Female
  Weight: 46 kg

DRUGS (11)
  1. ICATIBANT [Suspect]
     Active Substance: ICATIBANT ACETATE
     Indication: Hereditary angioedema
     Dosage: UNK
  2. ICATIBANT [Suspect]
     Active Substance: ICATIBANT ACETATE
     Dosage: 20 MILLIGRAM, Q8HR
  3. ICATIBANT [Suspect]
     Active Substance: ICATIBANT ACETATE
     Dosage: 10 MILLIGRAM, Q6HR
  4. ICATIBANT [Suspect]
     Active Substance: ICATIBANT ACETATE
     Dosage: 15 MILLIGRAM, Q6HR
  5. ICATIBANT [Suspect]
     Active Substance: ICATIBANT ACETATE
     Dosage: 75 MICROGRAM
  6. ICATIBANT [Suspect]
     Active Substance: ICATIBANT ACETATE
     Dosage: 20 MILLIGRAM, Q6HR
  7. ICATIBANT [Suspect]
     Active Substance: ICATIBANT ACETATE
     Dosage: UNK UNK, Q6HR
  8. ICATIBANT [Suspect]
     Active Substance: ICATIBANT ACETATE
     Dosage: 1 DOSAGE FORM, Q8HR
  9. ICATIBANT [Suspect]
     Active Substance: ICATIBANT ACETATE
     Dosage: UNK
  10. ICATIBANT [Suspect]
     Active Substance: ICATIBANT ACETATE
     Dosage: UNK
  11. TAKHZYRO [Suspect]
     Active Substance: LANADELUMAB-FLYO
     Indication: Hereditary angioedema
     Dosage: UNK UNK, Q2WEEKS

REACTIONS (12)
  - Post procedural haemorrhage [Unknown]
  - Weight increased [Not Recovered/Not Resolved]
  - Product distribution issue [Unknown]
  - Breast feeding [Unknown]
  - Weight decreased [Unknown]
  - Body height decreased [Not Recovered/Not Resolved]
  - Pregnancy [Recovered/Resolved]
  - Prescribed underdose [Unknown]
  - Product use issue [Unknown]
  - Incorrect dose administered [Recovered/Resolved]
  - Treatment noncompliance [Not Recovered/Not Resolved]
  - Product dose omission issue [Not Recovered/Not Resolved]

NARRATIVE: CASE EVENT DATE: 20221004
